FAERS Safety Report 22626111 (Version 1)
Quarter: 2023Q2

REPORT INFORMATION
  Report Type: Spontaneous
  Country: US (occurrence: None)
  Receive Date: 20230619
  Receipt Date: 20230619
  Transmission Date: 20230722
  Serious: Yes (Other)
  Sender: FDA-Public Use
  Company Number: None

PATIENT
  Sex: Female

DRUGS (1)
  1. AIMOVIG [Suspect]
     Active Substance: ERENUMAB-AOOE
     Indication: Migraine
     Dosage: 70 MG MONTHLY SUBCUTANEOUS?
     Route: 058
     Dates: start: 20230303, end: 20230601

REACTIONS (2)
  - Constipation [None]
  - Intestinal obstruction [None]
